FAERS Safety Report 7630342-8 (Version None)
Quarter: 2011Q3

REPORT INFORMATION
  Report Type: 
  Country: None (occurrence: None)
  Receive Date: 20110722
  Receipt Date: 20110720
  Transmission Date: 20111222
  Serious: Yes (Death)
  Sender: FDA-Public Use
  Company Number: GB-SANOFI-AVENTIS-2011SA046372

PATIENT
  Age: 57 Year
  Sex: Female

DRUGS (8)
  1. OMEPRAZOLE [Concomitant]
     Dates: start: 20110509, end: 20110511
  2. PROCHLORPERAZINE [Concomitant]
     Dates: start: 20110510, end: 20110512
  3. DEXAMETHASONE [Concomitant]
  4. OXALIPLATIN [Suspect]
     Indication: RECTAL CANCER METASTATIC
     Route: 042
     Dates: start: 20110316, end: 20110427
  5. AVASTIN [Suspect]
     Indication: RECTAL CANCER METASTATIC
     Route: 042
     Dates: start: 20110406, end: 20110427
  6. ONDANSETRON [Concomitant]
     Dates: start: 20110510, end: 20110512
  7. CAPECITABINE [Suspect]
     Indication: RECTAL CANCER METASTATIC
     Dosage: 1700 MG BID EVRY 2 WEEKS
     Route: 048
     Dates: start: 20110316, end: 20110427
  8. CYCLIZINE [Concomitant]
     Dates: start: 20110510, end: 20110512

REACTIONS (2)
  - ORAL CANDIDIASIS [None]
  - CEREBROVASCULAR ACCIDENT [None]
